FAERS Safety Report 10285805 (Version 4)
Quarter: 2014Q4

REPORT INFORMATION
  Report Type: Spontaneous
  Country: US (occurrence: None)
  Receive Date: 20140703
  Receipt Date: 20141020
  Transmission Date: 20150528
  Serious: Yes (Hospitalization)
  Sender: FDA-Public Use
  Company Number: UNT-2014-002567

PATIENT
  Age: 64 Year
  Sex: Female
  Weight: 65.3 kg

DRUGS (4)
  1. TRACLEER [Concomitant]
     Active Substance: BOSENTAN\BOSENTAN MONOHYDRATE
  2. COUMADIN [Concomitant]
     Active Substance: WARFARIN SODIUM
  3. REMODULIN [Suspect]
     Active Substance: TREPROSTINIL
     Indication: PULMONARY ARTERIAL HYPERTENSION
     Dosage: 0.038 ?G/KG/MIN, CONTINUING, IV DRIP
     Route: 041
     Dates: start: 20130820
  4. REVATIO [Concomitant]
     Active Substance: SILDENAFIL CITRATE

REACTIONS (10)
  - Vomiting [None]
  - Diarrhoea [None]
  - Device issue [None]
  - Device use error [None]
  - Weight decreased [None]
  - Pulmonary hypertension [None]
  - Arthralgia [None]
  - Medication error [None]
  - Nausea [None]
  - Wrong technique in drug usage process [None]

NARRATIVE: CASE EVENT DATE: 201308
